FAERS Safety Report 26073152 (Version 1)
Quarter: 2025Q4

REPORT INFORMATION
  Report Type: Report from Study
  Country: CA (occurrence: CA)
  Receive Date: 20251121
  Receipt Date: 20251121
  Transmission Date: 20260118
  Serious: Yes (Death, Hospitalization)
  Sender: NOVARTIS
  Company Number: CA-002147023-NVSC2025CA164125

PATIENT
  Age: 78 Year
  Sex: Female

DRUGS (14)
  1. LEQVIO [Suspect]
     Active Substance: INCLISIRAN SODIUM
     Indication: Arteriosclerosis
     Dosage: 284 MG/1.5 ML, OTHER, (INITIAL, 3 MONTHS, Q 6 MONTHS)
     Route: 058
     Dates: start: 20231109
  2. LEQVIO [Suspect]
     Active Substance: INCLISIRAN SODIUM
     Indication: Hypercholesterolaemia
     Dosage: 284 MG/1.5 ML, OTHER, (INITIAL, 3 MONTHS, Q 6 MONTHS)
     Route: 058
     Dates: start: 20250312
  3. OMNARIS [Concomitant]
     Active Substance: CICLESONIDE
     Indication: Product used for unknown indication
     Dosage: 2 SPRAYS IN EACH NOSTRIL DAILY (50 MCG NASAL SPRAY)
     Route: 045
     Dates: start: 20231129
  4. TRESIBA [Concomitant]
     Active Substance: INSULIN DEGLUDEC
     Indication: Product used for unknown indication
     Dosage: INJECT 26 UNITS DAILY, TITRATE Q3D AS DIRECTED) (STRENGTH: 100 UNIT/ML PEN)
     Route: 058
     Dates: start: 20231129
  5. CHLORTHALIDONE [Concomitant]
     Active Substance: CHLORTHALIDONE
     Indication: Product used for unknown indication
     Dosage: 0.5 DOSAGE FORM, QD (50 MG TABLET)
     Route: 048
     Dates: start: 20240807
  6. LIPITOR [Concomitant]
     Active Substance: ATORVASTATIN CALCIUM
     Indication: Product used for unknown indication
     Dosage: 20 MG, QN (20 MG TABLET, 1 TABLET(S) EVERY DAY AT BEDTIME)
     Route: 065
     Dates: start: 20250118
  7. METOPROLOL TARTRATE [Concomitant]
     Active Substance: METOPROLOL TARTRATE
     Indication: Product used for unknown indication
     Dosage: 25 MG, BID (25 MG ORAL TABLET)
     Route: 048
     Dates: start: 20250118
  8. HYDROCHLOROTHIAZIDE [Concomitant]
     Active Substance: HYDROCHLOROTHIAZIDE
     Indication: Product used for unknown indication
     Dosage: 25 MG, QD (25 MG ORAL TABLET)
     Route: 048
     Dates: start: 20250331
  9. INSULIN ASPART [Concomitant]
     Active Substance: INSULIN ASPART
     Indication: Product used for unknown indication
     Dosage: 20 UNITS, TID; ADJUST AS DIRECTED (100 UNIT/ML, 3ML, INSULIN PEN)
     Route: 058
     Dates: start: 20250426
  10. IRBESARTAN [Concomitant]
     Active Substance: IRBESARTAN
     Indication: Product used for unknown indication
     Dosage: 300 MG, QD (300 MG ORAL TABLET)
     Route: 048
     Dates: start: 20250512
  11. AMLODIPINE BESYLATE [Concomitant]
     Active Substance: AMLODIPINE BESYLATE
     Indication: Product used for unknown indication
     Dosage: 10 MG, QD (10 MG ORAL TABLET)
     Route: 048
     Dates: start: 20250512
  12. ASPIRIN [Concomitant]
     Active Substance: ASPIRIN
     Indication: Product used for unknown indication
     Dosage: 81 MG, QD (81 MG TABLET EC)
     Route: 065
     Dates: start: 20250512
  13. RANITIDINE HYDROCHLORIDE [Concomitant]
     Active Substance: RANITIDINE HYDROCHLORIDE
     Indication: Product used for unknown indication
     Dosage: 150 MG, BID (150 MG ORAL TABLET)
     Route: 048
     Dates: start: 20250515
  14. VITAMIN D3 [Concomitant]
     Active Substance: CHOLECALCIFEROL
     Indication: Product used for unknown indication
     Dosage: 1 DOSAGE FORM, QD (1000 UNIT (25 MCG) ORAL CAPSULE)
     Route: 048

REACTIONS (2)
  - Embolic stroke [Fatal]
  - Confusional state [Fatal]
